FAERS Safety Report 18283743 (Version 2)
Quarter: 2020Q4

REPORT INFORMATION
  Report Type: Report from Study
  Country: US (occurrence: US)
  Receive Date: 20200918
  Receipt Date: 20201012
  Transmission Date: 20210113
  Serious: Yes (Hospitalization)
  Sender: FDA-Public Use
  Company Number: US-JNJFOC-A-NJ2017-160623

PATIENT
  Age: 50 Year
  Sex: Female
  Weight: 64.4 kg

DRUGS (7)
  1. EPOPROSTENOL SODIUM. [Suspect]
     Active Substance: EPOPROSTENOL SODIUM
     Dosage: 21.7 NG/KG, PER MIN
     Route: 042
  2. AMLODIPINE [Concomitant]
     Active Substance: AMLODIPINE BESYLATE
  3. EPOPROSTENOL SODIUM. [Suspect]
     Active Substance: EPOPROSTENOL SODIUM
     Dosage: 22 NG/KG, PER MIN
     Route: 042
  4. REVATIO [Concomitant]
     Active Substance: SILDENAFIL CITRATE
  5. VIAGRA [Concomitant]
     Active Substance: SILDENAFIL CITRATE
  6. EPOPROSTENOL SODIUM. [Suspect]
     Active Substance: EPOPROSTENOL SODIUM
     Dosage: 22 NG/KG, PER MIN
     Route: 042
  7. EPOPROSTENOL SODIUM. [Suspect]
     Active Substance: EPOPROSTENOL SODIUM
     Indication: PULMONARY HYPERTENSION
     Dosage: 22 NG/KG, PER MIN
     Route: 042

REACTIONS (22)
  - Influenza [Recovered/Resolved]
  - Nasopharyngitis [Unknown]
  - Device physical property issue [Unknown]
  - Dyspnoea [Unknown]
  - Vertigo [Unknown]
  - Malnutrition [Unknown]
  - Oxygen saturation decreased [Unknown]
  - Fluid retention [Unknown]
  - Systemic lupus erythematosus [Unknown]
  - Incorrect dose administered [Unknown]
  - Weight decreased [Unknown]
  - Feeling abnormal [Unknown]
  - Fatigue [Unknown]
  - Cardiac failure congestive [Unknown]
  - Decreased appetite [Unknown]
  - Oedema peripheral [Unknown]
  - Confusional state [Not Recovered/Not Resolved]
  - Pneumonia [Not Recovered/Not Resolved]
  - Cough [Not Recovered/Not Resolved]
  - Sneezing [Not Recovered/Not Resolved]
  - Pain in jaw [Not Recovered/Not Resolved]
  - Dyspnoea exertional [Unknown]

NARRATIVE: CASE EVENT DATE: 2019
